FAERS Safety Report 5754372-6 (Version None)
Quarter: 2008Q2

REPORT INFORMATION
  Report Type: 
  Country: None (occurrence: None)
  Receive Date: 20080530
  Receipt Date: 20080522
  Transmission Date: 20081010
  Serious: Yes (Life-Threatening)
  Sender: FDA-Public Use
  Company Number: AU-ABBOTT-08P-008-0452765-00

PATIENT
  Sex: Female

DRUGS (5)
  1. SEVORANE LIQUID FOR INHALATION [Suspect]
     Indication: UNWANTED AWARENESS DURING ANAESTHESIA
     Dates: start: 20070907
  2. FENTANYL-100 [Suspect]
     Indication: UNWANTED AWARENESS DURING ANAESTHESIA
     Dates: start: 20070907
  3. NITROUS OXIDE [Suspect]
     Indication: DRUG USE FOR UNKNOWN INDICATION
     Dates: start: 20070907
  4. PROPOFOL [Suspect]
     Indication: UNWANTED AWARENESS DURING ANAESTHESIA
     Dates: start: 20070907
  5. ROCURONIUM BROMIDE [Suspect]
     Indication: UNWANTED AWARENESS DURING ANAESTHESIA
     Dates: start: 20070907

REACTIONS (2)
  - ANAPHYLACTIC REACTION [None]
  - HYPOTENSION [None]
